FAERS Safety Report 10066208 (Version 1)
Quarter: 2014Q2

REPORT INFORMATION
  Report Type: Spontaneous
  Country: US (occurrence: US)
  Receive Date: 20140408
  Receipt Date: 20140408
  Transmission Date: 20141212
  Serious: No
  Sender: FDA-Public Use
  Company Number: US-GILEAD-2014-0098714

PATIENT
  Age: 55 Year
  Sex: Female

DRUGS (4)
  1. ATRIPLA [Suspect]
     Indication: HIV INFECTION
     Dosage: UNK
     Route: 065
     Dates: start: 201402
  2. VIREAD [Suspect]
     Indication: HIV INFECTION
     Dosage: UNK
     Route: 065
  3. EPIVIR [Concomitant]
     Indication: HIV INFECTION
  4. SUSTIVA [Concomitant]
     Indication: HIV INFECTION

REACTIONS (3)
  - Abdominal distension [Unknown]
  - Nausea [Unknown]
  - Abnormal dreams [Unknown]
